FAERS Safety Report 19513320 (Version 1)
Quarter: 2021Q3

REPORT INFORMATION
  Report Type: Report from Study
  Country: CA (occurrence: CA)
  Receive Date: 20210709
  Receipt Date: 20210709
  Transmission Date: 20211014
  Serious: Yes (Other)
  Sender: FDA-Public Use
  Company Number: CA-JNJFOC-20210711396

PATIENT
  Age: 46 Year
  Sex: Female
  Weight: 82.7 kg

DRUGS (1)
  1. REMICADE [Suspect]
     Active Substance: INFLIXIMAB
     Indication: CROHN^S DISEASE
     Dosage: ON 05?JUL?2021, PATIENT RECEIVED THE 5TH INFUSION OF INFLIXIMAB 400 MG
     Route: 042
     Dates: start: 20210303

REACTIONS (1)
  - Basal cell carcinoma [Unknown]
